FAERS Safety Report 14473087 (Version 3)
Quarter: 2020Q2

REPORT INFORMATION
  Report Type: Spontaneous
  Country: US (occurrence: US)
  Receive Date: 20180201
  Receipt Date: 20200615
  Transmission Date: 20200713
  Serious: Yes (Hospitalization)
  Sender: FDA-Public Use
  Company Number: US-JNJFOC-20180124679

PATIENT
  Age: 62 Year
  Sex: Female

DRUGS (2)
  1. XARELTO [Suspect]
     Active Substance: RIVAROXABAN
     Indication: DEEP VEIN THROMBOSIS
     Route: 048
     Dates: start: 20141112, end: 20160201
  2. ASPIRIN. [Suspect]
     Active Substance: ASPIRIN
     Indication: HEADACHE
     Route: 065
     Dates: start: 20160131

REACTIONS (1)
  - Intraventricular haemorrhage [Recovering/Resolving]

NARRATIVE: CASE EVENT DATE: 20160201
